FAERS Safety Report 6687480-6 (Version None)
Quarter: 2010Q2

REPORT INFORMATION
  Report Type: 
  Country: None (occurrence: None)
  Receive Date: 20100416
  Receipt Date: 20100416
  Transmission Date: 20101027
  Serious: Yes (Other)
  Sender: FDA-Public Use
  Company Number: None

PATIENT
  Sex: Female
  Weight: 63.5036 kg

DRUGS (1)
  1. AZYTHROMYCIN 250 MG [Suspect]
     Indication: SINUSITIS
     Dosage: 500 MG 1XD 1 DAY ; 250 MG 1 X D 10 DAYS
     Dates: start: 20100223, end: 20100304

REACTIONS (7)
  - ANXIETY [None]
  - EYELID PTOSIS [None]
  - INSOMNIA [None]
  - NERVOUS SYSTEM DISORDER [None]
  - NERVOUSNESS [None]
  - POOR QUALITY SLEEP [None]
  - TENSION [None]
